FAERS Safety Report 9480192 (Version 1)
Quarter: 2013Q3

REPORT INFORMATION
  Report Type: Spontaneous
  Country: US (occurrence: US)
  Receive Date: 20130828
  Receipt Date: 20130828
  Transmission Date: 20140515
  Serious: Yes (Other)
  Sender: FDA-Public Use
  Company Number: US-AMGEN-KDL085522

PATIENT
  Age: 50 Year
  Sex: Male

DRUGS (2)
  1. ENBREL [Suspect]
     Indication: PSORIATIC ARTHROPATHY
     Dosage: 50 MG, QWK
     Route: 058
     Dates: start: 20031101
  2. PREDNISONE [Concomitant]

REACTIONS (5)
  - Pulmonary sarcoidosis [Unknown]
  - Decreased appetite [Unknown]
  - Weight decreased [Unknown]
  - Blood calcium increased [Unknown]
  - Nausea [Unknown]
